FAERS Safety Report 4446056-1 (Version None)
Quarter: 2004Q3

REPORT INFORMATION
  Report Type: 
  Country: None (occurrence: None)
  Receive Date: 20040910
  Receipt Date: 20040622
  Transmission Date: 20050211
  Serious: Yes (Other)
  Sender: FDA-Public Use
  Company Number: US-ROCHE-371866

PATIENT
  Age: 51 Year
  Sex: Female
  Weight: 80.5 kg

DRUGS (2)
  1. PEGASYS [Suspect]
     Indication: HEPATITIS C
     Dosage: REPORTED AS: 180MCG QWK.
     Route: 058
     Dates: start: 20040220, end: 20040805
  2. RIBAVIRIN [Concomitant]
     Indication: HEPATITIS C
     Route: 048
     Dates: start: 20040220

REACTIONS (1)
  - DYSKINESIA [None]
